FAERS Safety Report 9582171 (Version 1)
Quarter: 2013Q4

REPORT INFORMATION
  Report Type: Spontaneous
  Country: US (occurrence: US)
  Receive Date: 20131002
  Receipt Date: 20131002
  Transmission Date: 20140711
  Serious: No
  Sender: FDA-Public Use
  Company Number: US-AMGEN-USASP2013039009

PATIENT
  Age: 53 Year
  Sex: Female
  Weight: 68.03 kg

DRUGS (7)
  1. ENBREL [Suspect]
     Indication: PRODUCT USED FOR UNKNOWN INDICATION
     Dosage: 50 MG, QWK
     Route: 065
  2. SULFASALAZIN [Concomitant]
     Dosage: 500 MG, UNK
  3. NAPROXEN [Concomitant]
     Dosage: 250 MG, UNK
  4. VITAMIN D                          /00107901/ [Concomitant]
     Dosage: 1000 UNIT, UNK
  5. CALCIUM [Concomitant]
     Dosage: 500 MG, UNK
  6. MULTIVITAMINS, PLAIN [Concomitant]
     Dosage: UNK
  7. CO Q 10                            /00517201/ [Concomitant]
     Dosage: 10 MG, UNK

REACTIONS (1)
  - Hypoaesthesia [Recovered/Resolved]
